FAERS Safety Report 9217789 (Version 1)
Quarter: 2013Q2

REPORT INFORMATION
  Report Type: Report from Study
  Country: KR (occurrence: KR)
  Receive Date: 20130408
  Receipt Date: 20130408
  Transmission Date: 20140414
  Serious: Yes (Other)
  Sender: FDA-Public Use
  Company Number: KR-NAPPMUNDI-GBR-2013-0013578

PATIENT
  Age: 78 Year
  Sex: Female

DRUGS (5)
  1. OXYCODONE [Suspect]
     Indication: CANCER PAIN
     Dosage: UNK
     Dates: start: 20110311
  2. OXYCODONE [Suspect]
     Dosage: UNK
     Route: 048
     Dates: start: 20101109
  3. BISACODYL [Concomitant]
     Dosage: UNK
     Dates: start: 20120311
  4. BISACODYL [Concomitant]
     Dosage: UNK
  5. FENTANYL [Concomitant]
     Dosage: UNK
     Dates: start: 20101109

REACTIONS (4)
  - Delirium [Unknown]
  - Dizziness [Unknown]
  - Somnolence [Unknown]
  - Constipation [Unknown]
